FAERS Safety Report 9686195 (Version 1)
Quarter: 2013Q4

REPORT INFORMATION
  Report Type: Spontaneous
  Country: US (occurrence: US)
  Receive Date: 20131113
  Receipt Date: 20131113
  Transmission Date: 20140711
  Serious: Yes (Hospitalization)
  Sender: FDA-Public Use
  Company Number: US-JNJFOC-20131103598

PATIENT
  Age: 5 Decade
  Sex: Male

DRUGS (3)
  1. INVOKANA [Suspect]
     Indication: DIABETES MELLITUS
     Route: 048
  2. INVOKANA [Suspect]
     Indication: DIABETES MELLITUS
     Route: 048
  3. LEVEMIR [Concomitant]
     Indication: DIABETES MELLITUS
     Route: 058

REACTIONS (2)
  - Hypokalaemia [Unknown]
  - Polyuria [Unknown]
